FAERS Safety Report 6496655-0 (Version None)
Quarter: 2009Q4

REPORT INFORMATION
  Report Type: 
  Country: None (occurrence: None)
  Receive Date: 20091210
  Receipt Date: 20091129
  Transmission Date: 20100525
  Serious: Yes (Other)
  Sender: FDA-Public Use
  Company Number: 2009-04305

PATIENT
  Age: 37 Year
  Sex: Male
  Weight: 68.6 kg

DRUGS (4)
  1. VELCADE [Suspect]
     Indication: MULTIPLE MYELOMA
     Dosage: 2.3 MG, UNK, INTRAVENOUS
     Route: 042
  2. IBANDRONATE SODIUM [Suspect]
     Dosage: 6 MG, MONTHLY, INTRAVENOUS
     Route: 042
  3. THALIDOMIDE [Concomitant]
  4. DEXAMETHASONE TAB [Concomitant]

REACTIONS (2)
  - DRUG INEFFECTIVE [None]
  - PRODUCT QUALITY ISSUE [None]
